FAERS Safety Report 15325842 (Version 1)
Quarter: 2018Q3

REPORT INFORMATION
  Report Type: Report from Study
  Country: PR (occurrence: PR)
  Receive Date: 20180828
  Receipt Date: 20180828
  Transmission Date: 20181010
  Serious: Yes (Other)
  Sender: FDA-Public Use
  Company Number: PR-MALLINCKRODT-T201702539

PATIENT
  Sex: Female

DRUGS (4)
  1. REPOSITORY CORTICOTROPIN INJECTION [Suspect]
     Active Substance: CORTICOTROPIN
     Indication: PROTEINURIA
     Dosage: 80 UNITS/1 ML, 2 TIMES PER WEEK
     Route: 058
     Dates: start: 20170130
  2. REPOSITORY CORTICOTROPIN INJECTION [Suspect]
     Active Substance: CORTICOTROPIN
     Dosage: 80 UNITS/1 ML, 2 TIMES PER WEEK, MONDAY/THURSDAY
     Route: 058
     Dates: start: 20180312
  3. REPOSITORY CORTICOTROPIN INJECTION [Suspect]
     Active Substance: CORTICOTROPIN
     Dosage: 80 UNITS / 1 ML 2 TIMES PER WEEK MON/THURS
     Route: 058
  4. REPOSITORY CORTICOTROPIN INJECTION [Suspect]
     Active Substance: CORTICOTROPIN
     Indication: NEPHROTIC SYNDROME
     Dosage: 80 UNITS/1 ML, 2 TIMES PER WEEK
     Route: 058
     Dates: end: 20171120

REACTIONS (10)
  - Underdose [Not Recovered/Not Resolved]
  - Urinary tract infection [Not Recovered/Not Resolved]
  - Bone pain [Not Recovered/Not Resolved]
  - Blood triglycerides increased [Not Recovered/Not Resolved]
  - Urine abnormality [Unknown]
  - Hyperglycaemia [Not Recovered/Not Resolved]
  - Blood cholesterol increased [Not Recovered/Not Resolved]
  - Proteinuria [Not Recovered/Not Resolved]
  - Drug dose omission [Unknown]
  - Smear cervix abnormal [Unknown]
